FAERS Safety Report 8988098 (Version 2)
Quarter: 2013Q1

REPORT INFORMATION
  Report Type: Report from Study
  Country: BE (occurrence: BE)
  Receive Date: 20121227
  Receipt Date: 20130225
  Transmission Date: 20140127
  Serious: Yes (Hospitalization)
  Sender: FDA-Public Use
  Company Number: BE-ABBOTT-12P-013-1026343-00

PATIENT
  Age: 45 Year
  Sex: Female

DRUGS (3)
  1. HUMIRA [Suspect]
     Indication: PSORIASIS
     Dates: start: 20120207, end: 201204
  2. HUMIRA [Suspect]
     Dates: start: 201205, end: 201208
  3. HUMIRA [Suspect]
     Dates: start: 201209, end: 201212

REACTIONS (2)
  - Depression [Recovering/Resolving]
  - Back pain [Recovering/Resolving]
